FAERS Safety Report 7717590-3 (Version None)
Quarter: 2011Q3

REPORT INFORMATION
  Report Type: 
  Country: None (occurrence: None)
  Receive Date: 20110830
  Receipt Date: 20110825
  Transmission Date: 20111222
  Serious: Yes (Other)
  Sender: FDA-Public Use
  Company Number: US-SANOFI-AVENTIS-2011SA054882

PATIENT
  Sex: Female

DRUGS (3)
  1. LOVENOX [Suspect]
     Route: 065
     Dates: start: 20090101
  2. LOVENOX [Suspect]
     Indication: PREGNANCY
     Route: 065
     Dates: start: 20030101
  3. LOVENOX [Suspect]
     Route: 065
     Dates: start: 20110101

REACTIONS (1)
  - ABORTION SPONTANEOUS [None]
